FAERS Safety Report 8835772 (Version 1)
Quarter: 2012Q4

REPORT INFORMATION
  Report Type: 
  Country: US (occurrence: US)
  Receive Date: 20121011
  Receipt Date: 20121011
  Transmission Date: 20130627
  Serious: Yes (Hospitalization)
  Sender: FDA-Public Use
  Company Number: US-GLAXOSMITHKLINE-A0896402A

PATIENT
  Age: 49 Year
  Sex: Female

DRUGS (13)
  1. ONDANSETRON [Suspect]
     Indication: IMPAIRED GASTRIC EMPTYING
     Dosage: 1TAB As required
     Route: 048
     Dates: start: 2008
  2. NOVOLOG [Concomitant]
  3. ZENPEP [Concomitant]
  4. ATENOLOL [Concomitant]
  5. DIAZEPAM [Concomitant]
  6. ENTERIC ASPIRIN [Concomitant]
  7. NEXIUM [Concomitant]
  8. PSYLLIUM FIBER [Concomitant]
  9. LOPERAMIDE [Concomitant]
  10. OXYCODONE [Concomitant]
  11. SERTRALINE [Concomitant]
  12. WELLBUTRIN [Concomitant]
  13. SIMVASTATIN [Concomitant]

REACTIONS (2)
  - Vomiting [Unknown]
  - Nausea [Unknown]
